FAERS Safety Report 8790016 (Version 2)
Quarter: 2013Q4

REPORT INFORMATION
  Report Type: Spontaneous
  Country: US (occurrence: US)
  Receive Date: 20120917
  Receipt Date: 20131031
  Transmission Date: 20140711
  Serious: Yes (Other)
  Sender: FDA-Public Use
  Company Number: US-MERCK-1209USA005848

PATIENT
  Sex: Female

DRUGS (1)
  1. SAPHRIS [Suspect]
     Dosage: 10 MG, QH
     Route: 002

REACTIONS (4)
  - Mucosal excoriation [Unknown]
  - Mouth haemorrhage [Unknown]
  - Tongue ulceration [Unknown]
  - Glossodynia [Unknown]
